FAERS Safety Report 26041658 (Version 1)
Quarter: 2025Q4

REPORT INFORMATION
  Report Type: Spontaneous
  Country: US (occurrence: US)
  Receive Date: 20251113
  Receipt Date: 20251113
  Transmission Date: 20260119
  Serious: No
  Sender: ALIMERA
  Company Number: US-EYEPOINT PHARMACEUTICALS, INC.-US-EYP-23-00309

PATIENT
  Sex: Male

DRUGS (1)
  1. YUTIQ [Suspect]
     Active Substance: FLUOCINOLONE ACETONIDE
     Indication: Macular degeneration
     Dosage: 0.18 MILLIGRAM, SINGLE, LEFT EYE/OS
     Route: 031

REACTIONS (1)
  - Off label use [Unknown]
